FAERS Safety Report 7605989-5 (Version None)
Quarter: 2011Q3

REPORT INFORMATION
  Report Type: 
  Country: None (occurrence: None)
  Receive Date: 20110713
  Receipt Date: 20110705
  Transmission Date: 20111222
  Serious: Yes (Hospitalization, Other)
  Sender: FDA-Public Use
  Company Number: PHHO2007AU03996

PATIENT
  Sex: Male
  Weight: 70 kg

DRUGS (3)
  1. PRAVACHOL [Concomitant]
     Dosage: 60 MG, DAILY
     Route: 048
  2. HYDRALAZINE HCL [Concomitant]
  3. EVEROLIMUS [Suspect]
     Indication: HEART TRANSPLANT
     Dosage: 0.75 MG, BID
     Route: 048
     Dates: start: 20070209, end: 20070227

REACTIONS (6)
  - THROMBOCYTOPENIA [None]
  - HEPATOTOXICITY [None]
  - ALANINE AMINOTRANSFERASE INCREASED [None]
  - GAMMA-GLUTAMYLTRANSFERASE INCREASED [None]
  - BLOOD TRIGLYCERIDES INCREASED [None]
  - RENAL IMPAIRMENT [None]
